FAERS Safety Report 6043689-6 (Version None)
Quarter: 2009Q1

REPORT INFORMATION
  Report Type: 
  Country: None (occurrence: None)
  Receive Date: 20090115
  Receipt Date: 20090107
  Transmission Date: 20090719
  Serious: Yes (Other)
  Sender: FDA-Public Use
  Company Number: 2009SP000630

PATIENT
  Age: 51 Year
  Sex: Male

DRUGS (2)
  1. RIBAVIRIN [Suspect]
     Indication: HEPATITIS C
     Dosage: 1 GM; QD
  2. INTERFERON ALFA [Suspect]
     Indication: HEPATITIS C
     Dosage: 3 MIU; TIW

REACTIONS (3)
  - BASEDOW'S DISEASE [None]
  - DISEASE RECURRENCE [None]
  - OSTEOPOROSIS [None]
